FAERS Safety Report 5423448-5 (Version None)
Quarter: 2007Q3

REPORT INFORMATION
  Report Type: 
  Country: None (occurrence: None)
  Receive Date: 20070727
  Receipt Date: 20070507
  Transmission Date: 20080115
  Serious: No
  Sender: FDA-Public Use
  Company Number: 263473

PATIENT
  Age: 46 Year
  Sex: Female

DRUGS (2)
  1. LEVEMIR [Suspect]
     Indication: INSULIN-REQUIRING TYPE II DIABETES MELLITUS
     Dosage: 36-44 IU, QD; SUBCUTANEOUS
     Route: 058
     Dates: start: 20070403
  2. BYETTA (EXENATIDE, EXENATIDE) [Concomitant]

REACTIONS (1)
  - INJECTION SITE URTICARIA [None]
